FAERS Safety Report 16617325 (Version 1)
Quarter: 2019Q3

REPORT INFORMATION
  Report Type: Spontaneous
  Country: FR (occurrence: FR)
  Receive Date: 20190723
  Receipt Date: 20190723
  Transmission Date: 20191004
  Serious: Yes (Life-Threatening, Hospitalization)
  Sender: FDA-Public Use
  Company Number: FR-MYLANLABS-2019M1067998

PATIENT
  Age: 75 Year
  Sex: Female
  Weight: 54 kg

DRUGS (2)
  1. CYCLOPHOSPHAMIDE. [Suspect]
     Active Substance: CYCLOPHOSPHAMIDE
     Indication: BREAST CANCER
     Dosage: 790 MILLIGRAM
     Route: 042
     Dates: start: 20181206, end: 20190118
  2. EPIRUBICIN [Suspect]
     Active Substance: EPIRUBICIN
     Indication: BREAST CANCER
     Dosage: 156 MILLIGRAM
     Route: 042
     Dates: start: 20181206, end: 20190118

REACTIONS (4)
  - Anal ulcer [Recovering/Resolving]
  - Gastrointestinal necrosis [Recovering/Resolving]
  - Neutropenia [Recovering/Resolving]
  - Pseudomonal sepsis [Recovering/Resolving]

NARRATIVE: CASE EVENT DATE: 201901
